FAERS Safety Report 6816639-X (Version None)
Quarter: 2010Q3

REPORT INFORMATION
  Report Type: 
  Country: None (occurrence: None)
  Receive Date: 20100706
  Receipt Date: 20100622
  Transmission Date: 20110219
  Serious: Yes (Hospitalization)
  Sender: FDA-Public Use
  Company Number: US-JNJFOC-20100608007

PATIENT
  Sex: Female

DRUGS (4)
  1. CHILDREN'S MOTRIN [Suspect]
     Indication: FEBRILE CONVULSION
     Dosage: 100MG ALTERNATING EVERY 3 HOURS WITH TYLENOL
     Route: 048
  2. CHILDREN'S MOTRIN [Suspect]
     Indication: VIRAL INFECTION
     Dosage: 100MG ALTERNATING EVERY 3 HOURS WITH TYLENOL
     Route: 048
  3. CHILDREN'S TYLENOL SUSPENSION [Concomitant]
     Indication: PYREXIA
     Route: 048
  4. PHENOBARBITAL [Concomitant]
     Indication: CONVULSION
     Route: 065

REACTIONS (3)
  - HYPERSENSITIVITY [None]
  - PRODUCT QUALITY ISSUE [None]
  - PYREXIA [None]
